FAERS Safety Report 14527568 (Version 2)
Quarter: 2018Q1

REPORT INFORMATION
  Report Type: Spontaneous
  Country: IT (occurrence: IT)
  Receive Date: 20180213
  Receipt Date: 20180326
  Transmission Date: 20180509
  Serious: Yes (Other)
  Sender: FDA-Public Use
  Company Number: IT-SA-2018SA029632

PATIENT
  Age: 34 Year
  Sex: Male

DRUGS (2)
  1. MIRTAZAPINE. [Concomitant]
     Active Substance: MIRTAZAPINE
     Route: 065
     Dates: start: 2006
  2. ALEMTUZUMAB [Suspect]
     Active Substance: ALEMTUZUMAB
     Indication: RELAPSING-REMITTING MULTIPLE SCLEROSIS
     Dosage: DOSE: CUMULATIVE DOSE 60 MG
     Route: 065
     Dates: start: 201605, end: 201605

REACTIONS (11)
  - Blood lactate dehydrogenase increased [Recovered/Resolved]
  - Autoimmune haemolytic anaemia [Recovered/Resolved]
  - Asthenia [Recovered/Resolved]
  - Coombs indirect test positive [Recovered/Resolved]
  - Palpitations [Recovered/Resolved]
  - Nephropathy [Recovered/Resolved]
  - Haptoglobin decreased [Recovered/Resolved]
  - Albuminuria [Recovered/Resolved]
  - Haemoglobin decreased [Recovered/Resolved]
  - Coombs direct test positive [Recovered/Resolved]
  - Anaemia [Recovered/Resolved]

NARRATIVE: CASE EVENT DATE: 201704
